FAERS Safety Report 16797246 (Version 1)
Quarter: 2019Q3

REPORT INFORMATION
  Report Type: Spontaneous
  Country: US (occurrence: US)
  Receive Date: 20190912
  Receipt Date: 20190912
  Transmission Date: 20191005
  Serious: No
  Sender: FDA-Public Use
  Company Number: US-CIPLA LTD.-2019US05580

PATIENT

DRUGS (1)
  1. ALENDRONATE [Suspect]
     Active Substance: ALENDRONATE SODIUM
     Indication: BONE DISORDER
     Dosage: 70 MILLIGRAM (ONE TABLET)
     Route: 048

REACTIONS (6)
  - Myalgia [Unknown]
  - Headache [Unknown]
  - Feeling abnormal [Unknown]
  - Chills [Unknown]
  - Pyrexia [Unknown]
  - Diarrhoea [Unknown]
